FAERS Safety Report 13030025 (Version 4)
Quarter: 2017Q2

REPORT INFORMATION
  Report Type: Report from Study
  Country: US (occurrence: US)
  Receive Date: 20161215
  Receipt Date: 20170405
  Transmission Date: 20170830
  Serious: Yes (Hospitalization, Other)
  Sender: FDA-Public Use
  Company Number: US-BIOGEN-2016BI00329455

PATIENT
  Age: 65 Year
  Sex: Female

DRUGS (3)
  1. TECFIDERA [Suspect]
     Active Substance: DIMETHYL FUMARATE
     Indication: MULTIPLE SCLEROSIS
     Dosage: MAINTENANCE DOSE
     Route: 048
     Dates: start: 20161001
  2. TECFIDERA [Suspect]
     Active Substance: DIMETHYL FUMARATE
     Dosage: MAINTENANCE DOSE
     Route: 048
     Dates: start: 20161011
  3. TECFIDERA [Suspect]
     Active Substance: DIMETHYL FUMARATE
     Dosage: MAINTENANCE DOSE
     Route: 048
     Dates: start: 20161012

REACTIONS (11)
  - Anaemia [Unknown]
  - Fall [Recovered/Resolved]
  - Gastrooesophageal reflux disease [Unknown]
  - Bronchitis [Not Recovered/Not Resolved]
  - Headache [Unknown]
  - Migraine [Not Recovered/Not Resolved]
  - Dysphonia [Unknown]
  - Pericardial effusion [Not Recovered/Not Resolved]
  - Pneumonia [Unknown]
  - Concussion [Unknown]
  - Asthma [Unknown]

NARRATIVE: CASE EVENT DATE: 2016
